FAERS Safety Report 7473958-4 (Version None)
Quarter: 2011Q2

REPORT INFORMATION
  Report Type: 
  Country: None (occurrence: None)
  Receive Date: 20110511
  Receipt Date: 20090125
  Transmission Date: 20111010
  Serious: Yes (Other)
  Sender: FDA-Public Use
  Company Number: US-BAYER-200911499NA

PATIENT
  Age: 58 Year
  Sex: Male
  Weight: 77.098 kg

DRUGS (16)
  1. TRASYLOL [Suspect]
     Indication: AORTIC VALVE REPLACEMENT
  2. AMICAR [Concomitant]
     Dosage: 10MG
     Route: 042
     Dates: start: 20001017
  3. TRASYLOL [Suspect]
     Indication: MITRAL VALVE REPLACEMENT
  4. HEPARIN [Concomitant]
     Dosage: 10,000 AND  6,000
     Route: 042
     Dates: start: 20001017
  5. RED BLOOD CELLS, LEUCOCYTE DEPLETED [Concomitant]
     Dosage: 4 UNITS
     Route: 042
     Dates: start: 20001017
  6. FRESH FROZEN PLASMA [Concomitant]
     Dosage: 6 UNITS
     Route: 042
     Dates: start: 20001017
  7. MILRINONE [Concomitant]
     Dosage: 2MCG
     Route: 042
     Dates: start: 20001017
  8. PLATELETS [Concomitant]
     Dosage: 4 UNITS
     Dates: start: 20001017
  9. RED BLOOD CELLS, CONCENTRATED [Concomitant]
     Dosage: 3 UNITS
     Dates: start: 20001017
  10. LIPITOR [Concomitant]
     Dosage: 10MG/ONCE A DAY
     Route: 048
  11. WHOLE BLOOD [Concomitant]
     Dosage: 3 UNITS
     Route: 042
     Dates: start: 20001017
  12. RED BLOOD CELLS, LEUCOCYTE DEPLETED [Concomitant]
  13. LASIX [Concomitant]
     Dosage: 40MG
     Route: 042
     Dates: start: 20001017
  14. TRASYLOL [Suspect]
     Indication: CORONARY ARTERY BYPASS
     Dosage: UNK, CONT
     Route: 042
     Dates: start: 20001017
  15. PLATELETS [Concomitant]
     Dosage: UNK
  16. TEGRETOL [Concomitant]
     Dosage: 200MG/3 TIMES A DAY, LONG TERM
     Route: 048

REACTIONS (10)
  - UNEVALUABLE EVENT [None]
  - FEAR [None]
  - RENAL INJURY [None]
  - RENAL IMPAIRMENT [None]
  - MULTI-ORGAN FAILURE [None]
  - STRESS [None]
  - ANXIETY [None]
  - PAIN [None]
  - RENAL FAILURE [None]
  - EMOTIONAL DISTRESS [None]
